FAERS Safety Report 8915394 (Version 1)
Quarter: 2012Q4

REPORT INFORMATION
  Report Type: 
  Country: US (occurrence: US)
  Receive Date: 20121119
  Receipt Date: 20121119
  Transmission Date: 20130627
  Serious: No
  Sender: FDA-Public Use
  Company Number: US-PFIZER INC-2012283996

PATIENT
  Age: 77 Year
  Sex: Female
  Weight: 52.61 kg

DRUGS (3)
  1. ONDANSETRON [Suspect]
     Indication: NAUSEA
     Dosage: 4 mg, single
     Dates: start: 20121111, end: 20121111
  2. ONDANSETRON [Suspect]
     Indication: VOMITING
  3. CELEBREX [Concomitant]
     Indication: OSTEOARTHRITIS
     Dosage: 200 mg, daily

REACTIONS (1)
  - Dizziness [Unknown]
